FAERS Safety Report 8530141-9 (Version None)
Quarter: 2012Q3

REPORT INFORMATION
  Report Type: 
  Country: None (occurrence: None)
  Receive Date: 20120723
  Receipt Date: 20120719
  Transmission Date: 20120928
  Serious: Yes (Death, Other)
  Sender: FDA-Public Use
  Company Number: PHEH2009US04395

PATIENT
  Sex: Male
  Weight: 98.413 kg

DRUGS (33)
  1. PROTONIX [Concomitant]
     Dosage: 40 MG, QD
     Route: 048
  2. SUCRALFATE [Concomitant]
     Dosage: 1 DF, TID
  3. RESTORIL [Concomitant]
     Dosage: 15 MG, QHS, PRN
     Route: 048
  4. PENICILLIN VK [Concomitant]
     Dosage: 500 MG, QD
  5. COREG [Concomitant]
     Dosage: 1 DF, BID
     Route: 048
  6. LYRICA [Concomitant]
  7. PHENERGAN HCL [Concomitant]
     Dosage: 1 DF, QHS
  8. EXCEDRIN (MIGRAINE) [Concomitant]
     Dosage: 2 DF, BID
  9. HUMIBID [Concomitant]
  10. SKELAXIN [Concomitant]
  11. ZOMETA [Suspect]
     Indication: BONE LOSS
     Route: 042
     Dates: start: 20030101, end: 20070801
  12. PREDNISONE [Concomitant]
  13. ASPIRIN [Concomitant]
  14. SOLU-MEDROL [Concomitant]
     Dosage: 60 MG, Q6H
     Route: 042
  15. ZOFRAN [Concomitant]
  16. CYMBALTA [Concomitant]
     Dosage: 1 DF, QD
  17. LACTULOSE [Concomitant]
     Dosage: 30 ML, TID
  18. AMBIEN [Concomitant]
     Dosage: 10 MG, QHS
     Route: 048
  19. OXYCONTIN [Concomitant]
     Dosage: 20 MG, QHS
     Route: 048
  20. ZYVOX [Concomitant]
     Dosage: 600 MG, Q12H
     Route: 042
  21. ZOMETA [Suspect]
     Indication: NEOPLASM MALIGNANT
     Dosage: 4 MG, QMO
     Route: 042
     Dates: start: 20020814
  22. REVLIMID [Concomitant]
  23. SYMBICORT [Concomitant]
     Dosage: 160 UG AND 4.5 UG, 2 PUFF, BID
  24. ADVAIR DISKUS 100/50 [Concomitant]
     Dosage: 500 UG AND 50 UG, 1 PUFF, BID
  25. LOMOTIL [Concomitant]
     Dosage: 2.5 MG, QID
  26. PAXIL [Concomitant]
  27. CELEBREX [Concomitant]
  28. NEXIUM [Concomitant]
  29. COUMADIN [Concomitant]
  30. COMBIVENT [Concomitant]
  31. FLOVENT [Concomitant]
  32. ROCEPHIN [Concomitant]
     Dosage: 1 G, QD
  33. TOPRAL [Concomitant]

REACTIONS (94)
  - PAIN IN JAW [None]
  - ACUTE SINUSITIS [None]
  - CARDIOMEGALY [None]
  - PLEURAL EFFUSION [None]
  - METABOLIC ACIDOSIS [None]
  - PARKINSON'S DISEASE [None]
  - BENIGN PROSTATIC HYPERPLASIA [None]
  - MITRAL VALVE INCOMPETENCE [None]
  - HYPONATRAEMIA [None]
  - MELANOCYTIC NAEVUS [None]
  - SWELLING [None]
  - MULTIPLE MYELOMA [None]
  - EXPOSED BONE IN JAW [None]
  - DISABILITY [None]
  - ORAL CAVITY FISTULA [None]
  - PNEUMONIA [None]
  - ASTHMA [None]
  - ATELECTASIS [None]
  - HYPERTENSION [None]
  - EXOPHTHALMOS [None]
  - TIBIA FRACTURE [None]
  - RESPIRATORY TRACT CONGESTION [None]
  - ANXIETY [None]
  - JAW FRACTURE [None]
  - DYSPNOEA [None]
  - OBSTRUCTIVE AIRWAYS DISORDER [None]
  - HEPATIC STEATOSIS [None]
  - UMBILICAL HERNIA [None]
  - BARRETT'S OESOPHAGUS [None]
  - TREMOR [None]
  - EPISTAXIS [None]
  - ATRIAL FIBRILLATION [None]
  - MOUTH HAEMORRHAGE [None]
  - GRANULOMA [None]
  - OSTEOMYELITIS [None]
  - LUNG NEOPLASM [None]
  - CHRONIC SINUSITIS [None]
  - PULMONARY OEDEMA [None]
  - CHOLELITHIASIS [None]
  - CARDIAC FAILURE CONGESTIVE [None]
  - THROMBOCYTOPENIA [None]
  - HERPES VIRUS INFECTION [None]
  - ACUTE PRERENAL FAILURE [None]
  - SYNCOPE [None]
  - HYPOTHYROIDISM [None]
  - HIATUS HERNIA [None]
  - RIB FRACTURE [None]
  - DILATATION VENTRICULAR [None]
  - PAIN [None]
  - IRON DEFICIENCY ANAEMIA [None]
  - MELAENA [None]
  - SEPSIS [None]
  - BRONCHIECTASIS [None]
  - INTERSTITIAL LUNG DISEASE [None]
  - HEPATITIS ACUTE [None]
  - GASTRITIS [None]
  - EOSINOPHILIA [None]
  - ERYTHEMA [None]
  - RESPIRATORY DISTRESS [None]
  - CHEST PAIN [None]
  - SWELLING FACE [None]
  - DENTAL CARIES [None]
  - COUGH [None]
  - SPONDYLOLISTHESIS [None]
  - DERMAL CYST [None]
  - RENAL FAILURE ACUTE [None]
  - SEBORRHOEIC DERMATITIS [None]
  - METASTASES TO BONE [None]
  - ACANTHOSIS [None]
  - OSTEONECROSIS OF JAW [None]
  - DRY MOUTH [None]
  - LUNG INFILTRATION [None]
  - TRICUSPID VALVE INCOMPETENCE [None]
  - SLEEP APNOEA SYNDROME [None]
  - CAROTID ARTERY STENOSIS [None]
  - PSEUDOMONAS BRONCHITIS [None]
  - CONFUSIONAL STATE [None]
  - PSEUDOCYST [None]
  - ABSCESS [None]
  - INJURY [None]
  - CEREBRAL ATROPHY [None]
  - CORONARY ARTERY DISEASE [None]
  - BRONCHIOLITIS [None]
  - CHRONIC OBSTRUCTIVE PULMONARY DISEASE [None]
  - SKIN LESION [None]
  - BALANITIS [None]
  - HYPOXIA [None]
  - FALL [None]
  - HYPOKALAEMIA [None]
  - RHINITIS [None]
  - RHABDOMYOLYSIS [None]
  - CEREBROVASCULAR ACCIDENT [None]
  - SEBORRHOEIC KERATOSIS [None]
  - PATHOLOGICAL FRACTURE [None]
